FAERS Safety Report 18949024 (Version 2)
Quarter: 2021Q1

REPORT INFORMATION
  Report Type: Report from Study
  Country: US (occurrence: US)
  Receive Date: 20210227
  Receipt Date: 20210309
  Transmission Date: 20210420
  Serious: Yes (Other)
  Sender: FDA-Public Use
  Company Number: US-UCBSA-2021009109

PATIENT
  Age: 28 Year
  Sex: Female
  Weight: 127 kg

DRUGS (2)
  1. LEVETIRACETAM. [Suspect]
     Active Substance: LEVETIRACETAM
     Indication: EPILEPSY
     Dosage: 1000MG DAILY
  2. LEVETIRACETAM. [Suspect]
     Active Substance: LEVETIRACETAM
     Dosage: 2000MG DAILY

REACTIONS (10)
  - Somnambulism [Unknown]
  - Feeling of body temperature change [Unknown]
  - Dizziness [Unknown]
  - Headache [Unknown]
  - Loss of consciousness [Unknown]
  - Respiration abnormal [Unknown]
  - Dyskinesia [Unknown]
  - Blood pressure increased [Unknown]
  - Speech disorder [Unknown]
  - Tremor [Unknown]
